FAERS Safety Report 9349418 (Version 2)
Quarter: 2013Q3

REPORT INFORMATION
  Report Type: Spontaneous
  Country: US (occurrence: US)
  Receive Date: 20130614
  Receipt Date: 20130801
  Transmission Date: 20140515
  Serious: Yes (Hospitalization)
  Sender: FDA-Public Use
  Company Number: US-BAXTER-2013BAX021479

PATIENT
  Age: 46 Year
  Sex: Female

DRUGS (2)
  1. DIANEAL LOW CALCIUM [Suspect]
     Indication: PERITONEAL DIALYSIS
     Route: 033
  2. DIANEAL LOW CALCIUM [Suspect]
     Indication: PERITONEAL DIALYSIS
     Route: 033

REACTIONS (5)
  - Chest pain [Recovering/Resolving]
  - Dizziness [Recovering/Resolving]
  - Blood count abnormal [Recovering/Resolving]
  - Fall [Not Recovered/Not Resolved]
  - Gastroenteritis viral [Not Recovered/Not Resolved]
